FAERS Safety Report 6291193-2 (Version None)
Quarter: 2009Q3

REPORT INFORMATION
  Report Type: 
  Country: None (occurrence: None)
  Receive Date: 20090730
  Receipt Date: 20090721
  Transmission Date: 20100115
  Serious: Yes (Death)
  Sender: FDA-Public Use
  Company Number: DE-JNJFOC-20090706963

PATIENT
  Age: 40 Year
  Sex: Male

DRUGS (4)
  1. JURNISTA [Suspect]
     Route: 048
  2. JURNISTA [Suspect]
     Indication: CANCER PAIN
     Route: 048
  3. HALOPERIDOL [Suspect]
     Indication: DISORIENTATION
     Route: 048
  4. MORPHINE [Concomitant]
     Indication: BREAKTHROUGH PAIN
     Route: 058

REACTIONS (3)
  - CARDIAC FAILURE [None]
  - DISORIENTATION [None]
  - WRONG TECHNIQUE IN DRUG USAGE PROCESS [None]
